FAERS Safety Report 9981244 (Version 1)
Quarter: 2014Q1

REPORT INFORMATION
  Report Type: Spontaneous
  Country: US (occurrence: None)
  Receive Date: 20140306
  Receipt Date: 20140306
  Transmission Date: 20141002
  Serious: No
  Sender: FDA-Public Use
  Company Number: None

PATIENT
  Age: 42 Year
  Sex: Female
  Weight: 99.79 kg

DRUGS (1)
  1. CETIRIZINE 10 MG [Suspect]
     Indication: MULTIPLE ALLERGIES
     Dosage: TAKEN BY MOUTH
     Dates: start: 20100301, end: 20140301

REACTIONS (10)
  - Pruritus [None]
  - Urticaria [None]
  - Headache [None]
  - Dry mouth [None]
  - Nasal discomfort [None]
  - Chest pain [None]
  - Dyspnoea [None]
  - Aggression [None]
  - Irritability [None]
  - Nausea [None]
